FAERS Safety Report 5303604-7 (Version None)
Quarter: 2007Q2

REPORT INFORMATION
  Report Type: 
  Country: None (occurrence: None)
  Receive Date: 20070420
  Receipt Date: 20070404
  Transmission Date: 20071010
  Serious: Yes (Other)
  Sender: FDA-Public Use
  Company Number: PHEH2007US04111

PATIENT
  Age: 69 Year
  Sex: Female

DRUGS (1)
  1. ZELNORM [Suspect]
     Indication: IRRITABLE BOWEL SYNDROME
     Dosage: 6 MG, BID
     Route: 048
     Dates: start: 20070306, end: 20070403

REACTIONS (6)
  - CHILLS [None]
  - DIZZINESS [None]
  - FLATULENCE [None]
  - HAEMATOCHEZIA [None]
  - HYPOTRICHOSIS [None]
  - TREMOR [None]
